FAERS Safety Report 13113997 (Version 1)
Quarter: 2017Q1

REPORT INFORMATION
  Report Type: Spontaneous
  Country: SE (occurrence: SE)
  Receive Date: 20170113
  Receipt Date: 20170113
  Transmission Date: 20170428
  Serious: Yes (Hospitalization)
  Sender: FDA-Public Use
  Company Number: SE-TEVA-728091ISR

PATIENT
  Age: 34 Year
  Sex: Male

DRUGS (6)
  1. TETRACYCLINE [Suspect]
     Active Substance: TETRACYCLINE
  2. TRAMADOL. [Suspect]
     Active Substance: TRAMADOL
  3. CETIRIZINE [Suspect]
     Active Substance: CETIRIZINE HYDROCHLORIDE
  4. FINASTERIDE. [Suspect]
     Active Substance: FINASTERIDE
  5. LORATADINE. [Suspect]
     Active Substance: LORATADINE
  6. ALPRAZOLAM. [Suspect]
     Active Substance: ALPRAZOLAM

REACTIONS (3)
  - Depressed level of consciousness [Recovered/Resolved]
  - Toxicity to various agents [Recovered/Resolved]
  - Suicidal ideation [Recovered/Resolved]
